FAERS Safety Report 4569468-4 (Version None)
Quarter: 2005Q1

REPORT INFORMATION
  Report Type: 
  Country: None (occurrence: None)
  Receive Date: 20050201
  Receipt Date: 20050118
  Transmission Date: 20050727
  Serious: Yes (Hospitalization)
  Sender: FDA-Public Use
  Company Number: 2005BI001262

PATIENT
  Age: 28 Year
  Sex: Female
  Weight: 70.7611 kg

DRUGS (4)
  1. AVONEX [Suspect]
     Indication: MULTIPLE SCLEROSIS
     Dosage: 30UG; QW; IM
     Route: 030
     Dates: start: 19960901, end: 19961201
  2. CYLERT [Concomitant]
  3. BACLOFEN [Concomitant]
  4. ZANAFLEX [Concomitant]

REACTIONS (3)
  - ABASIA [None]
  - DRUG INEFFECTIVE [None]
  - EYE MOVEMENT DISORDER [None]
